FAERS Safety Report 9860632 (Version 1)
Quarter: 2014Q1

REPORT INFORMATION
  Report Type: Spontaneous
  Country: US (occurrence: US)
  Receive Date: 20140202
  Receipt Date: 20140202
  Transmission Date: 20141002
  Serious: No
  Sender: FDA-Public Use
  Company Number: US-ALLERGAN-1300081US

PATIENT
  Age: 45 Year
  Sex: Female

DRUGS (4)
  1. BOTOX [Suspect]
     Indication: MIGRAINE
     Dosage: UNK UNK, SINGLE
     Route: 030
     Dates: start: 20121228, end: 20121228
  2. MAXALT                             /01406501/ [Concomitant]
     Indication: MIGRAINE
     Dosage: 10 MG, PRN
     Route: 048
  3. KEPPRA [Concomitant]
     Indication: MIGRAINE
     Dosage: 500 MG, QD
     Route: 048
     Dates: end: 20121229
  4. CO Q10 [Concomitant]
     Indication: PRODUCT USED FOR UNKNOWN INDICATION
     Dosage: 200 MG, QD
     Route: 048

REACTIONS (4)
  - Chest pain [Unknown]
  - Drug ineffective [Unknown]
  - Contusion [Unknown]
  - Gait disturbance [Unknown]
